FAERS Safety Report 23191198 (Version 1)
Quarter: 2023Q4

REPORT INFORMATION
  Report Type: Spontaneous
  Country: CN (occurrence: CN)
  Receive Date: 20231116
  Receipt Date: 20231116
  Transmission Date: 20240110
  Serious: Yes (Other)
  Sender: FDA-Public Use
  Company Number: None

PATIENT
  Age: 7 Year
  Sex: Female
  Weight: 22.5 kg

DRUGS (6)
  1. CYCLOPHOSPHAMIDE [Suspect]
     Active Substance: CYCLOPHOSPHAMIDE
     Indication: Oesophageal carcinoma
     Dosage: 1.75 G, ONE TIME IN ONE DAY
     Route: 041
     Dates: start: 20231102, end: 20231102
  2. CYCLOPHOSPHAMIDE [Suspect]
     Active Substance: CYCLOPHOSPHAMIDE
     Indication: Neoplasm malignant
  3. DOXORUBICIN HYDROCHLORIDE [Suspect]
     Active Substance: DOXORUBICIN HYDROCHLORIDE
     Indication: Oesophageal carcinoma
     Dosage: 20 MG, ONE TIME IN ONE DAY, INSTANT
     Route: 040
     Dates: start: 20231102, end: 20231102
  4. DOXORUBICIN HYDROCHLORIDE [Suspect]
     Active Substance: DOXORUBICIN HYDROCHLORIDE
     Indication: Neoplasm malignant
  5. VINCRISTINE SULFATE [Suspect]
     Active Substance: VINCRISTINE SULFATE
     Indication: Oesophageal carcinoma
     Dosage: 0.56 MG, ONE TIME IN ONE DAY
     Route: 041
     Dates: start: 20231102, end: 20231102
  6. VINCRISTINE SULFATE [Suspect]
     Active Substance: VINCRISTINE SULFATE
     Indication: Neoplasm malignant

REACTIONS (2)
  - Gastrointestinal disorder [Recovering/Resolving]
  - Vomiting [Recovering/Resolving]

NARRATIVE: CASE EVENT DATE: 20231102
